FAERS Safety Report 9245722 (Version 5)
Quarter: 2013Q2

REPORT INFORMATION
  Report Type: Report from Study
  Country: DE (occurrence: DE)
  Receive Date: 20130422
  Receipt Date: 20130620
  Transmission Date: 20140414
  Serious: Yes (Hospitalization)
  Sender: FDA-Public Use
  Company Number: DE-AMGEN-DEUCT2013027563

PATIENT
  Age: 65 Year
  Sex: Female
  Weight: 76.4 kg

DRUGS (3)
  1. PANITUMUMAB [Suspect]
     Indication: OVARIAN CANCER
     Dosage: 9 MG/KG, UNK
     Route: 042
     Dates: start: 20130308
  2. GEMCITABINE [Concomitant]
     Indication: OVARIAN CANCER
     Dosage: 1000 MG/M2, UNK
     Route: 042
     Dates: start: 20130308
  3. CARBOPLATIN [Concomitant]
     Indication: OVARIAN CANCER
     Dosage: UNK
     Route: 042
     Dates: start: 20130308

REACTIONS (1)
  - Anaemia [Recovered/Resolved]
